FAERS Safety Report 7960075-X (Version None)
Quarter: 2011Q4

REPORT INFORMATION
  Report Type: 
  Country: None (occurrence: None)
  Receive Date: 20111206
  Receipt Date: 20111130
  Transmission Date: 20120403
  Serious: Yes (Hospitalization)
  Sender: FDA-Public Use
  Company Number: CHPA2011US016641

PATIENT
  Age: 63 Year
  Sex: Female

DRUGS (1)
  1. EXCEDRIN (MIGRAINE) [Suspect]
     Indication: HEADACHE
     Dosage: 2 DF, QHS
     Route: 048

REACTIONS (4)
  - DYSPNOEA [None]
  - INCORRECT DRUG ADMINISTRATION DURATION [None]
  - CARDIAC FAILURE CONGESTIVE [None]
  - PERICARDIAL EFFUSION [None]
